FAERS Safety Report 12663513 (Version 1)
Quarter: 2016Q3

REPORT INFORMATION
  Report Type: Other
  Country: ES (occurrence: ES)
  Receive Date: 20160818
  Receipt Date: 20160818
  Transmission Date: 20161109
  Serious: Yes (Other)
  Sender: FDA-Public Use
  Company Number: ES-KOWA-16EU001521

PATIENT
  Age: 79 Year
  Sex: Male

DRUGS (1)
  1. ALIPZA [Suspect]
     Active Substance: PITAVASTATIN
     Indication: HYPERLIPIDAEMIA
     Dosage: UNK, QD
     Route: 048
     Dates: start: 20130103, end: 20140415

REACTIONS (1)
  - Hepatitis cholestatic [Recovered/Resolved]

NARRATIVE: CASE EVENT DATE: 20131001
